FAERS Safety Report 6667012-9 (Version None)
Quarter: 2010Q2

REPORT INFORMATION
  Report Type: 
  Country: None (occurrence: None)
  Receive Date: 20100402
  Receipt Date: 20100402
  Transmission Date: 20101027
  Serious: Yes (Hospitalization, Other)
  Sender: FDA-Public Use
  Company Number: None

PATIENT
  Sex: Male
  Weight: 98.4306 kg

DRUGS (19)
  1. CIPROFLOXACIN HCL [Suspect]
     Indication: EAR INFECTION
     Dosage: 1 TABLET TWICE A DAY PO
     Route: 048
     Dates: start: 20100313, end: 20100323
  2. CIPROFLOXACIN HCL [Suspect]
     Indication: SINUSITIS
     Dosage: 1 TABLET TWICE A DAY PO
     Route: 048
     Dates: start: 20100313, end: 20100323
  3. LEXAPRO [Concomitant]
  4. BACLOFEN [Concomitant]
  5. BUSPAR [Concomitant]
  6. COREG [Concomitant]
  7. KLONOPIN [Concomitant]
  8. PLAVIX [Concomitant]
  9. PEPCID [Concomitant]
  10. TRILIPIX [Concomitant]
  11. NEURONTIN [Concomitant]
  12. NUVIGAL [Concomitant]
  13. FISH OIL [Concomitant]
  14. PRAVACHOL [Concomitant]
  15. TRAMADOL [Concomitant]
  16. VITAMIN D [Concomitant]
  17. VITAMIN B-12 [Concomitant]
  18. METANX [Concomitant]
  19. CALAMIST [Concomitant]

REACTIONS (2)
  - ABNORMAL DREAMS [None]
  - SUICIDAL IDEATION [None]
